FAERS Safety Report 6202559-0 (Version None)
Quarter: 2009Q2

REPORT INFORMATION
  Report Type: 
  Country: None (occurrence: None)
  Receive Date: 20090521
  Receipt Date: 20090521
  Transmission Date: 20091009
  Serious: Yes (Death, Hospitalization)
  Sender: FDA-Public Use
  Company Number: None

PATIENT
  Age: 55 Year
  Sex: Male
  Weight: 61 kg

DRUGS (10)
  1. CARBOPLATIN [Suspect]
     Indication: NON-SMALL CELL LUNG CANCER
     Dosage: 600 MG, ONCE EVERY 3 WEEKS,
     Dates: start: 20081205, end: 20090127
  2. PACLITAXEL [Suspect]
     Indication: NON-SMALL CELL LUNG CANCER
     Dosage: 350 MG, ONCE EVERY 3 WEEKS
     Dates: start: 20081205, end: 20090127
  3. (OTHER CHEMOTHERAPEUTICS) [Suspect]
     Indication: NON-SMALL CELL LUNG CANCER
     Dosage: 10 MG, 5 MG TWIC A DAY, ORAL
     Route: 048
     Dates: start: 20081205, end: 20090207
  4. CARBIMAZOLE) [Concomitant]
  5. ALPRAZOLAM [Concomitant]
  6. METOPROLOL TARTRATE [Concomitant]
  7. (METAMIZOLE SODIUM) [Concomitant]
  8. (NEUROL  /01561605/) [Concomitant]
  9. (VASOCARDIN) [Concomitant]
  10. (NOVALGIN /00039501/) [Concomitant]

REACTIONS (2)
  - PANCYTOPENIA [None]
  - SEPSIS [None]
